FAERS Safety Report 7373037-0 (Version None)
Quarter: 2011Q1

REPORT INFORMATION
  Report Type: 
  Country: None (occurrence: None)
  Receive Date: 20110324
  Receipt Date: 20110310
  Transmission Date: 20110831
  Serious: Yes (Hospitalization)
  Sender: FDA-Public Use
  Company Number: FR-JNJFOC-20110305674

PATIENT
  Age: 65 Year
  Sex: Female

DRUGS (1)
  1. REMICADE [Suspect]
     Indication: PARAPSORIASIS
     Route: 042

REACTIONS (4)
  - PARAPSORIASIS [None]
  - CELLULITIS [None]
  - DRUG INEFFECTIVE [None]
  - MOUTH ULCERATION [None]
